FAERS Safety Report 5636278-6 (Version None)
Quarter: 2008Q1

REPORT INFORMATION
  Report Type: 
  Country: None (occurrence: None)
  Receive Date: 20080225
  Receipt Date: 20080123
  Transmission Date: 20080703
  Serious: No
  Sender: FDA-Public Use
  Company Number: US-BAYER-200812492NA

PATIENT
  Age: 17 Year
  Sex: Female
  Weight: 61 kg

DRUGS (2)
  1. YAZ [Suspect]
     Indication: ORAL CONTRACEPTION
     Route: 048
     Dates: start: 20070415, end: 20070428
  2. ORAL CONTRACEPTIVE NOS [Concomitant]

REACTIONS (2)
  - HEADACHE [None]
  - RASH ERYTHEMATOUS [None]
